FAERS Safety Report 12196294 (Version 1)
Quarter: 2016Q1

REPORT INFORMATION
  Report Type: Report from Study
  Country: CA (occurrence: CA)
  Receive Date: 20160321
  Receipt Date: 20160321
  Transmission Date: 20160526
  Serious: Yes (Hospitalization)
  Sender: FDA-Public Use
  Company Number: CA-JNJFOC-20160124110

PATIENT
  Age: 70 Year
  Sex: Female
  Weight: 73.9 kg

DRUGS (4)
  1. BENADRYL [Concomitant]
     Active Substance: DIPHENHYDRAMINE HYDROCHLORIDE
     Route: 042
  2. REMICADE [Suspect]
     Active Substance: INFLIXIMAB
     Indication: COLITIS ULCERATIVE
     Route: 042
     Dates: start: 20160204
  3. REMICADE [Suspect]
     Active Substance: INFLIXIMAB
     Indication: COLITIS ULCERATIVE
     Route: 042
     Dates: start: 20160114
  4. TYLENOL [Concomitant]
     Active Substance: ACETAMINOPHEN
     Route: 065

REACTIONS (7)
  - Anxiety [Unknown]
  - Back pain [Recovered/Resolved]
  - Chills [Recovered/Resolved]
  - Infarction [Unknown]
  - Musculoskeletal stiffness [Unknown]
  - Breast pain [Recovered/Resolved]
  - Infusion related reaction [Unknown]

NARRATIVE: CASE EVENT DATE: 20160128
